FAERS Safety Report 19921639 (Version 1)
Quarter: 2021Q4

REPORT INFORMATION
  Report Type: Spontaneous
  Country: US (occurrence: US)
  Receive Date: 20211005
  Receipt Date: 20211005
  Transmission Date: 20220304
  Serious: Yes (Life-Threatening, Other)
  Sender: FDA-Public Use
  Company Number: US-PFIZER INC-202101238770

PATIENT
  Age: 72 Year
  Sex: Female
  Weight: 86.18 kg

DRUGS (4)
  1. METHOTREXATE SODIUM [Suspect]
     Active Substance: METHOTREXATE SODIUM
     Indication: Rheumatoid arthritis
     Dosage: 15 MG (6 OF THE 2.5 MG)
  2. METHOTREXATE SODIUM [Suspect]
     Active Substance: METHOTREXATE SODIUM
     Dosage: 2.5 MG, WEEKLY  (8 TABLETS BY MOUTH ONCE A WEEK)
     Route: 048
     Dates: start: 201905
  3. METHOTREXATE SODIUM [Suspect]
     Active Substance: METHOTREXATE SODIUM
     Dosage: 15 MG (3 DOSES)
     Dates: start: 20200928
  4. METHOTREXATE SODIUM [Suspect]
     Active Substance: METHOTREXATE SODIUM
     Dosage: 20 MG, WEEKLY (2.5 MG 8 TABLETS ONCE A WEEK)
     Dates: start: 202011

REACTIONS (15)
  - Arthritis [Not Recovered/Not Resolved]
  - Basedow^s disease [Recovering/Resolving]
  - Arthralgia [Unknown]
  - Joint swelling [Unknown]
  - Pain in extremity [Unknown]
  - Arthralgia [Unknown]
  - Peripheral swelling [Unknown]
  - Joint swelling [Unknown]
  - Pain in extremity [Unknown]
  - Peripheral swelling [Unknown]
  - Bone pain [Not Recovered/Not Resolved]
  - Arthropathy [Unknown]
  - Goitre [Not Recovered/Not Resolved]
  - Pernicious anaemia [Unknown]
  - Conjunctivitis [Unknown]
